FAERS Safety Report 8438030 (Version 3)
Quarter: 2014Q4

REPORT INFORMATION
  Report Type: Report from Study
  Country: US (occurrence: US)
  Receive Date: 20120302
  Receipt Date: 20141126
  Transmission Date: 20150529
  Serious: Yes (Other)
  Sender: FDA-Public Use
  Company Number: US-ROCHE-1044902

PATIENT

DRUGS (5)
  1. TEMOZOLOMIDE. [Suspect]
     Active Substance: TEMOZOLOMIDE
     Dosage: GIVEN AT CONVENTIONAL DOSES (150-200 MG/M2) ON DAYS 1 TO 5.
     Route: 048
  2. ONDANSETRON [Concomitant]
     Active Substance: ONDANSETRON
  3. BEVACIZUMAB [Suspect]
     Active Substance: BEVACIZUMAB
     Dosage: ADJUVANT CHEMOTHERAPY
     Route: 042
  4. TEMOZOLOMIDE. [Suspect]
     Active Substance: TEMOZOLOMIDE
     Indication: GLIOBLASTOMA
     Route: 048
  5. BEVACIZUMAB [Suspect]
     Active Substance: BEVACIZUMAB
     Indication: GLIOBLASTOMA
     Dosage: ON DAYS 1 AND 15
     Route: 042

REACTIONS (11)
  - Thrombocytopenia [Unknown]
  - Neutropenia [Unknown]
  - Colitis [Unknown]
  - Hypokalaemia [Unknown]
  - Tumour haemorrhage [Unknown]
  - Pulmonary embolism [Unknown]
  - Hyponatraemia [Unknown]
  - Lymphopenia [Unknown]
  - Anaemia [Unknown]
  - Hypophosphataemia [Unknown]
  - Ischaemic stroke [Unknown]
